FAERS Safety Report 9106692 (Version 1)
Quarter: 2013Q1

REPORT INFORMATION
  Report Type: Spontaneous
  Country: JP (occurrence: JP)
  Receive Date: 20130221
  Receipt Date: 20130221
  Transmission Date: 20140127
  Serious: Yes (Death, Other)
  Sender: FDA-Public Use
  Company Number: PHHY2012JP083852

PATIENT
  Age: 71 Year
  Sex: Female
  Weight: 52 kg

DRUGS (20)
  1. GLIVEC [Suspect]
     Dosage: 100 MG, UNK
     Route: 048
     Dates: start: 20090214, end: 20090723
  2. GLIVEC [Suspect]
     Dosage: 200 MG, UNK
     Route: 048
     Dates: start: 20090724, end: 20110525
  3. GLIVEC [Suspect]
     Dosage: 100 MG, UNK
     Route: 048
     Dates: start: 20110526, end: 20120206
  4. CARELOAD [Suspect]
     Indication: PULMONARY ARTERIAL HYPERTENSION
     Dosage: 180 MG, UNK
     Route: 048
     Dates: end: 20120206
  5. TRACLEER [Suspect]
     Indication: PULMONARY ARTERIAL HYPERTENSION
     Dosage: 125 MG, UNK
     Dates: start: 200807, end: 20120206
  6. ADCIRCA [Suspect]
     Indication: PULMONARY ARTERIAL HYPERTENSION
     Dosage: 40 MG, UNK
     Route: 048
     Dates: end: 20120206
  7. PREDNISOLONE [Suspect]
     Indication: SCLERODERMA
     Dosage: 5 MG, UNK
     Route: 048
     Dates: end: 20120206
  8. MEVALOTIN [Suspect]
     Indication: DYSLIPIDAEMIA
     Dosage: 10 MG, UNK
     Route: 048
     Dates: end: 20130206
  9. LASIX [Suspect]
     Indication: PULMONARY ARTERIAL HYPERTENSION
     Dosage: 80 MG, UNK
     Route: 048
     Dates: end: 20120206
  10. ALDACTONE [Suspect]
     Indication: PULMONARY ARTERIAL HYPERTENSION
     Dosage: 50 MG, UNK
     Route: 048
     Dates: end: 20120206
  11. WARFARIN [Suspect]
     Indication: PULMONARY ARTERIAL HYPERTENSION
     Dosage: 3.75 MG, UNK
     Route: 048
     Dates: end: 20120206
  12. CODEINE PHOSPHATE [Suspect]
     Indication: PNEUMONIA
     Dosage: 40 MG, UNK
     Route: 048
     Dates: end: 20120206
  13. DOGMATYL [Suspect]
     Indication: DEPRESSION
     Dosage: 50 MG, UNK
     Route: 048
     Dates: end: 20120206
  14. RIZE [Suspect]
     Indication: DEPRESSION
     Dosage: 5 MG, UNK
     Route: 048
     Dates: end: 20120206
  15. MAGLAX [Suspect]
     Indication: CONSTIPATION PROPHYLAXIS
     Dosage: 750 MG, UNK
     Route: 048
     Dates: end: 20120206
  16. FERROMIA [Suspect]
     Indication: ANAEMIA
     Dosage: 100 MG, UNK
     Route: 048
     Dates: end: 20120206
  17. PARIET [Suspect]
     Indication: PROPHYLAXIS AGAINST GASTROINTESTINAL ULCER
     Dosage: 10 MG, UNK
     Route: 048
     Dates: end: 20120206
  18. ACTONEL [Suspect]
     Indication: OSTEOPOROSIS
     Dosage: UNK UKN, UNK
     Dates: end: 20120206
  19. CALONAL [Suspect]
     Indication: GINGIVITIS
     Dosage: 1500 MG, UNK
     Route: 048
     Dates: end: 20120206
  20. DEPAS [Suspect]
     Indication: DEPRESSION
     Dosage: 1 MG, UNK
     Route: 048
     Dates: end: 20120206

REACTIONS (5)
  - Interstitial lung disease [Fatal]
  - Concomitant disease aggravated [Fatal]
  - Respiratory failure [Fatal]
  - Respiratory arrest [Unknown]
  - Renal disorder [Recovered/Resolved]
